FAERS Safety Report 6028500-1 (Version None)
Quarter: 2008Q4

REPORT INFORMATION
  Report Type: 
  Country: None (occurrence: None)
  Receive Date: 20081222
  Receipt Date: 20081024
  Transmission Date: 20090506
  Serious: No
  Sender: FDA-Public Use
  Company Number: US-WYE-H06550208

PATIENT
  Age: 64 Year
  Sex: Female

DRUGS (3)
  1. PRISTIQ [Suspect]
     Dosage: 50 MG 1 X PER 1 TOT, ORAL
     Route: 048
     Dates: start: 20081023, end: 20081023
  2. SYNTHROID [Concomitant]
  3. IMITREX (SUMATRIPTAN SUCCINATE) [Concomitant]

REACTIONS (2)
  - ASTHENIA [None]
  - FEELING ABNORMAL [None]
